FAERS Safety Report 7079527-2 (Version None)
Quarter: 2010Q4

REPORT INFORMATION
  Report Type: 
  Country: None (occurrence: None)
  Receive Date: 20101022
  Receipt Date: 20101014
  Transmission Date: 20110411
  Serious: Yes (Other)
  Sender: FDA-Public Use
  Company Number: 2010MA002609

PATIENT
  Age: 49 Year
  Sex: Female

DRUGS (7)
  1. RAMIPRIL [Suspect]
     Indication: BLOOD PRESSURE
     Dosage: 20 MG
  2. PAROXETINE TABLETS, 30 MG (AELLC) (PAROXETINE) [Suspect]
     Indication: DEPRESSION
     Dosage: 30 MG
  3. AMISULPRIDE (SMISULPRIDE) [Suspect]
     Indication: SCHIZOPHRENIA
     Dosage: 200 MG; PO
     Route: 048
     Dates: end: 20100801
  4. CLOZARIL [Suspect]
     Indication: SCHIZOPHRENIA
     Dosage: 600 MG; QD; PO
     Route: 048
     Dates: start: 20050207
  5. LAMOTRIGINE [Suspect]
     Indication: CONVULSION
     Dosage: 50 MG
     Dates: end: 20100801
  6. TEMAZEPAM [Concomitant]
  7. CLOZARIL [Concomitant]

REACTIONS (3)
  - BREAST ABSCESS [None]
  - METASTASES TO SPINE [None]
  - PLATELET COUNT DECREASED [None]
